FAERS Safety Report 19928719 (Version 1)
Quarter: 2021Q4

REPORT INFORMATION
  Report Type: Spontaneous
  Country: FR (occurrence: FR)
  Receive Date: 20211007
  Receipt Date: 20211007
  Transmission Date: 20220303
  Serious: Yes (Hospitalization, Congenital Anomaly)
  Sender: FDA-Public Use
  Company Number: None

PATIENT
  Sex: Female
  Weight: 3.12 kg

DRUGS (2)
  1. OXALIPLATIN [Suspect]
     Active Substance: OXALIPLATIN
     Indication: Colon cancer
     Dosage: 81 MILLIGRAM, CYCLE (12 CURES 160 MG * 6, 145 * 2, 80 * 4)
     Route: 050
     Dates: start: 20171116, end: 20180419
  2. FLUOROURACIL [Suspect]
     Active Substance: FLUOROURACIL
     Indication: Colon cancer
     Dosage: 5300 MILLIGRAM, CYCLE
     Route: 050
     Dates: start: 20171116, end: 20180419

REACTIONS (2)
  - Cleft palate [Not Recovered/Not Resolved]
  - Exposure via father [Unknown]

NARRATIVE: CASE EVENT DATE: 20210504
